FAERS Safety Report 20832695 (Version 1)
Quarter: 2022Q2

REPORT INFORMATION
  Report Type: 
  Country: None (occurrence: None)
  Receive Date: 20220516
  Receipt Date: 20220516
  Transmission Date: 20220721
  Serious: No
  Sender: FDA-Public Use
  Company Number: IE-ROCHE-3071032

PATIENT
  Age: 58 Year

DRUGS (1)
  1. TECENTRIQ [Suspect]
     Active Substance: ATEZOLIZUMAB

REACTIONS (2)
  - Therapy cessation [None]
  - Small cell lung cancer [None]

NARRATIVE: CASE EVENT DATE: 20211026
